FAERS Safety Report 24110048 (Version 5)
Quarter: 2025Q3

REPORT INFORMATION
  Report Type: Spontaneous
  Country: EU (occurrence: EU)
  Receive Date: 20240718
  Receipt Date: 20250811
  Transmission Date: 20251021
  Serious: Yes (Life-Threatening, Hospitalization, Other)
  Sender: MYLAN
  Company Number: EU-MYLANLABS-2024M1066369

PATIENT
  Age: 20 Year
  Sex: Female

DRUGS (4)
  1. ACETAMINOPHEN [Suspect]
     Active Substance: ACETAMINOPHEN
     Indication: Alcoholic hangover
     Dosage: 3 GRAM, QW (3 GRAM PER DAY, 3 TIMES PER WEEK AFTER ALCOHOL CONSUMPTION)
  2. ACETAMINOPHEN [Suspect]
     Active Substance: ACETAMINOPHEN
     Dosage: 3 GRAM, QW (3 GRAM PER DAY, 3 TIMES PER WEEK AFTER ALCOHOL CONSUMPTION)
     Route: 065
  3. ACETAMINOPHEN [Suspect]
     Active Substance: ACETAMINOPHEN
     Dosage: 3 GRAM, QW (3 GRAM PER DAY, 3 TIMES PER WEEK AFTER ALCOHOL CONSUMPTION)
     Route: 065
  4. ACETAMINOPHEN [Suspect]
     Active Substance: ACETAMINOPHEN
     Dosage: 3 GRAM, QW (3 GRAM PER DAY, 3 TIMES PER WEEK AFTER ALCOHOL CONSUMPTION)

REACTIONS (3)
  - Acute hepatic failure [Recovering/Resolving]
  - Drug level increased [Unknown]
  - Intentional product misuse [Unknown]
